FAERS Safety Report 5318637-4 (Version None)
Quarter: 2007Q2

REPORT INFORMATION
  Report Type: 
  Country: None (occurrence: None)
  Receive Date: 20070508
  Receipt Date: 20070427
  Transmission Date: 20071010
  Serious: Yes (Other)
  Sender: FDA-Public Use
  Company Number: PHBS2007IE07348

PATIENT
  Age: 66 Year
  Sex: Female

DRUGS (4)
  1. DOLMATIL [Concomitant]
  2. AKINETON [Concomitant]
  3. PRAVASTATIN [Concomitant]
  4. CLOZARIL [Suspect]
     Dosage: 100 MG MORNING, 200 MG AFTERNOON
     Route: 048
     Dates: start: 20070426, end: 20070426

REACTIONS (5)
  - HYPERTENSION [None]
  - MEDICATION ERROR [None]
  - RESPIRATORY RATE DECREASED [None]
  - SOMNOLENCE [None]
  - TACHYCARDIA [None]
